FAERS Safety Report 16151870 (Version 2)
Quarter: 2019Q2

REPORT INFORMATION
  Report Type: Spontaneous
  Country: US (occurrence: US)
  Receive Date: 20190403
  Receipt Date: 20190425
  Transmission Date: 20190711
  Serious: Yes (Other)
  Sender: FDA-Public Use
  Company Number: US-MYLANLABS-2019M1029245

PATIENT
  Age: 50 Year
  Sex: Male
  Weight: 63.5 kg

DRUGS (1)
  1. COLD-EEZE? COLD REMEDY [Suspect]
     Active Substance: ZINC GLUCONATE
     Indication: NASOPHARYNGITIS
     Dosage: 1 DOSAGE FORM, QD
     Dates: start: 200409

REACTIONS (2)
  - Atrial fibrillation [Not Recovered/Not Resolved]
  - Cerebrovascular accident [Unknown]

NARRATIVE: CASE EVENT DATE: 200409
